FAERS Safety Report 6590196-8 (Version None)
Quarter: 2010Q1

REPORT INFORMATION
  Report Type: 
  Country: None (occurrence: None)
  Receive Date: 20100212
  Receipt Date: 20100129
  Transmission Date: 20100710
  Serious: Yes (Other)
  Sender: FDA-Public Use
  Company Number: DSA_42544_2010

PATIENT
  Sex: Female

DRUGS (7)
  1. DILTIAZEM HYDROCHLORIDE [Suspect]
     Indication: DRUG USE FOR UNKNOWN INDICATION
     Dosage: DF
  2. DRONEDARONE HCL [Suspect]
     Indication: ATRIAL FIBRILLATION
     Dosage: 400 MG BID ORAL
     Route: 048
     Dates: start: 20091105
  3. WARFARIN SODIUM [Concomitant]
  4. COZAAR [Concomitant]
  5. FUROSEMIDE [Concomitant]
  6. POTASSIUM [Concomitant]
  7. METOPROLOL TARTRATE [Concomitant]

REACTIONS (6)
  - DRUG INTERACTION [None]
  - DYSPNOEA [None]
  - GAIT DISTURBANCE [None]
  - HEART RATE INCREASED [None]
  - PALPITATIONS [None]
  - RESPIRATORY DISORDER [None]
